FAERS Safety Report 17562013 (Version 2)
Quarter: 2020Q1

REPORT INFORMATION
  Report Type: Spontaneous
  Country: SK (occurrence: SK)
  Receive Date: 20200319
  Receipt Date: 20200324
  Transmission Date: 20200409
  Serious: Yes (Congenital Anomaly, Other)
  Sender: FDA-Public Use
  Company Number: SK-GLAXOSMITHKLINE-SK2020GSK043948

PATIENT
  Sex: Male

DRUGS (13)
  1. SERTRALINE [Suspect]
     Active Substance: SERTRALINE HYDROCHLORIDE
     Indication: DEPRESSION
     Dosage: UNK
     Route: 064
  2. THIAMINE. [Suspect]
     Active Substance: THIAMINE
     Indication: WERNICKE^S ENCEPHALOPATHY
     Dosage: 100 MG THREE TIMES A DAY
     Route: 064
  3. RANITIDINE. [Suspect]
     Active Substance: RANITIDINE
     Indication: HYPEREMESIS GRAVIDARUM
     Dosage: 50 MG ONCE DAILY
     Route: 064
  4. PHYSIOLOGICAL SALINE SOLUTION [Suspect]
     Active Substance: SODIUM CHLORIDE
     Indication: HYPERTENSION
     Dosage: TWICE A DAY
     Route: 064
  5. METOCLOPRAMIDE. [Suspect]
     Active Substance: METOCLOPRAMIDE
     Indication: HYPEREMESIS GRAVIDARUM
     Dosage: 10 MG TWICE DAILY
     Route: 064
  6. THIAMINE. [Suspect]
     Active Substance: THIAMINE
     Dosage: 50?MG ORALLY ONCE A DAY
     Route: 064
  7. CEFUROXIME. [Suspect]
     Active Substance: CEFUROXIME
     Indication: LOWER RESPIRATORY TRACT INFECTION
     Dosage: 500 MG, BID
     Route: 064
  8. GLUCOSE 5% [Suspect]
     Active Substance: DEXTROSE
     Indication: HYPERTENSION
     Dosage: CONTINUOUS INFUSION OF 5 ML/H
     Route: 064
  9. GLUCOSE 10% [Suspect]
     Active Substance: DEXTROSE
     Indication: SUPPLEMENTATION THERAPY
     Dosage: UNK
     Route: 064
  10. MAGNESIUM SULFATE. [Suspect]
     Active Substance: MAGNESIUM SULFATE
     Indication: HYPERTENSION
     Dosage: 1 GRAM IN 10% SOLUTION TWICE A DAY
     Route: 064
  11. CARVEDILOL. [Suspect]
     Active Substance: CARVEDILOL
     Indication: HYPERTENSION
     Dosage: 12.5 MG, BID
     Route: 064
  12. URAPIDIL [Suspect]
     Active Substance: URAPIDIL
     Indication: HYPERTENSION
     Dosage: 250 MG
  13. POTASSIUM CHLORIDE. [Suspect]
     Active Substance: POTASSIUM CHLORIDE
     Indication: HYPOKALAEMIA
     Dosage: 1.5 G, BID
     Route: 064

REACTIONS (3)
  - Premature baby [Unknown]
  - Cleft lip [Unknown]
  - Foetal exposure during pregnancy [Unknown]
